FAERS Safety Report 12850478 (Version 3)
Quarter: 2017Q1

REPORT INFORMATION
  Report Type: Spontaneous
  Country: US (occurrence: US)
  Receive Date: 20161014
  Receipt Date: 20170224
  Transmission Date: 20170428
  Serious: Yes (Other)
  Sender: FDA-Public Use
  Company Number: US-BAYER-2016-198305

PATIENT
  Age: 32 Year
  Sex: Female
  Weight: 72.57 kg

DRUGS (2)
  1. MIRENA [Suspect]
     Active Substance: LEVONORGESTREL
     Indication: CONTRACEPTION
     Dosage: 20 MCG/24HR, CONT
     Route: 015
     Dates: start: 20090407, end: 20141001
  2. MIRENA [Suspect]
     Active Substance: LEVONORGESTREL
     Indication: CONTRACEPTION
     Dosage: 20 MCG/24HR, CONT
     Route: 015
     Dates: start: 20141001

REACTIONS (6)
  - Device use issue [None]
  - Pain [None]
  - Pregnancy with contraceptive device [None]
  - Embedded device [None]
  - Anxiety [None]
  - Drug ineffective [None]

NARRATIVE: CASE EVENT DATE: 201410
